FAERS Safety Report 6370874-6 (Version None)
Quarter: 2009Q3

REPORT INFORMATION
  Report Type: 
  Country: None (occurrence: None)
  Receive Date: 20090923
  Receipt Date: 20070615
  Transmission Date: 20100115
  Serious: Yes (Other)
  Sender: FDA-Public Use
  Company Number: US-ASTRAZENECA-2006UW23371

PATIENT
  Age: 6644 Day
  Sex: Female
  Weight: 81.6 kg

DRUGS (21)
  1. SEROQUEL [Suspect]
     Route: 048
     Dates: start: 20020101
  2. SEROQUEL [Suspect]
     Dosage: 100-250 MG
     Route: 048
     Dates: start: 20021223
  3. FLAGYL [Concomitant]
  4. CLONIDINE [Concomitant]
  5. PREVACID [Concomitant]
  6. ESKALITH CR [Concomitant]
  7. ZOLOFT [Concomitant]
  8. PROPRANOLOL [Concomitant]
  9. FLEXERIL [Concomitant]
  10. PHENYTOIN [Concomitant]
  11. TOPAMAX [Concomitant]
  12. LORATADINE [Concomitant]
  13. NITROFURANTOIN [Concomitant]
  14. PROMETHAZINE [Concomitant]
  15. OXYTOCIN [Concomitant]
  16. CLOZAPINE [Concomitant]
  17. OMEPRAZOLE [Concomitant]
  18. AMBIEN [Concomitant]
  19. CHLORPROMAZINE [Concomitant]
  20. DOCUSATE [Concomitant]
  21. COGENTIN [Concomitant]

REACTIONS (3)
  - DIABETES MELLITUS [None]
  - DIABETIC COMA [None]
  - DIABETIC KETOACIDOSIS [None]
